FAERS Safety Report 13564362 (Version 2)
Quarter: 2019Q2

REPORT INFORMATION
  Report Type: Spontaneous
  Country: US (occurrence: US)
  Receive Date: 20170519
  Receipt Date: 20190530
  Transmission Date: 20190711
  Serious: No
  Sender: FDA-Public Use
  Company Number: US-PFIZER INC-2017215197

PATIENT
  Age: 83 Year
  Sex: Female

DRUGS (8)
  1. LIPITOR [Suspect]
     Active Substance: ATORVASTATIN CALCIUM
     Dosage: UNK
  2. RELAFEN [Suspect]
     Active Substance: NABUMETONE
     Dosage: UNK
  3. DARVOCET [Suspect]
     Active Substance: ACETAMINOPHEN\PROPOXYPHENE HYDROCHLORIDE
     Dosage: UNK
  4. ZETIA [Suspect]
     Active Substance: EZETIMIBE
     Dosage: UNK
  5. ZOCOR [Suspect]
     Active Substance: SIMVASTATIN
     Dosage: UNK
  6. VIOXX [Suspect]
     Active Substance: ROFECOXIB
     Dosage: UNK
  7. FOSAMAX [Suspect]
     Active Substance: ALENDRONATE SODIUM
     Dosage: UNK
  8. WELCHOL [Suspect]
     Active Substance: COLESEVELAM HYDROCHLORIDE
     Dosage: UNK

REACTIONS (2)
  - Drug hypersensitivity [Unknown]
  - Urticaria [Unknown]
